FAERS Safety Report 4394383-9 (Version None)
Quarter: 2004Q3

REPORT INFORMATION
  Report Type: 
  Country: None (occurrence: None)
  Receive Date: 20040709
  Receipt Date: 20040709
  Transmission Date: 20050211
  Serious: Yes (Other)
  Sender: FDA-Public Use
  Company Number: None

PATIENT
  Age: 74 Year
  Sex: Male
  Weight: 96.2 kg

DRUGS (1)
  1. HYDRALAZINE HCL [Suspect]
     Dosage: 10 MG IVP X 2

REACTIONS (8)
  - ATRIAL FIBRILLATION [None]
  - DRUG HYPERSENSITIVITY [None]
  - DYSPNOEA [None]
  - EXTRASYSTOLES [None]
  - FLUSHING [None]
  - OEDEMA [None]
  - SWELLING [None]
  - VENTRICULAR TACHYCARDIA [None]
